FAERS Safety Report 9271862 (Version 2)
Quarter: 2013Q2

REPORT INFORMATION
  Report Type: Spontaneous
  Country: US (occurrence: US)
  Receive Date: 20130506
  Receipt Date: 20130529
  Transmission Date: 20140414
  Serious: Yes (Other)
  Sender: FDA-Public Use
  Company Number: US-PFIZER INC-2013138609

PATIENT
  Age: 33 Year
  Sex: Female
  Weight: 58.96 kg

DRUGS (5)
  1. EFFEXOR XR [Suspect]
     Indication: BIPOLAR DISORDER
     Dosage: 150 MG IN THE MORNING AND 75 MG IN NIGHT (2X/DAY)
     Dates: end: 201304
  2. EFFEXOR XR [Suspect]
     Indication: PERSONALITY DISORDER
  3. XANAX [Concomitant]
     Dosage: 2 MG, 3X/DAY
  4. LORTAB [Concomitant]
     Dosage: 10 MG, 4X/DAY
  5. HYDROCODONE [Concomitant]
     Dosage: 10 MG, 4X/DAY

REACTIONS (3)
  - Self injurious behaviour [Unknown]
  - Drug ineffective [Unknown]
  - Withdrawal syndrome [Unknown]
